FAERS Safety Report 20000498 (Version 1)
Quarter: 2021Q4

REPORT INFORMATION
  Report Type: Spontaneous
  Country: DE (occurrence: DE)
  Receive Date: 20211027
  Receipt Date: 20211027
  Transmission Date: 20220303
  Serious: Yes (Other)
  Sender: FDA-Public Use
  Company Number: DE-SERVIER-DE201824623

PATIENT
  Age: 4 Year

DRUGS (9)
  1. IRINOTECAN HYDROCHLORIDE [Suspect]
     Active Substance: IRINOTECAN HYDROCHLORIDE
     Indication: Choroid plexus carcinoma
     Dosage: DOSE NOT REPORTED
     Route: 065
  2. TEMOZOLOMIDE [Suspect]
     Active Substance: TEMOZOLOMIDE
     Indication: Choroid plexus carcinoma
     Dosage: DOSE NOT REPORTED
     Route: 065
  3. ETOPOSIDE [Suspect]
     Active Substance: ETOPOSIDE
     Indication: Choroid plexus carcinoma
     Dosage: DOSE NOT REPORTED
     Route: 065
  4. ETOPOSIDE [Suspect]
     Active Substance: ETOPOSIDE
     Indication: Li-Fraumeni syndrome
  5. CYCLOPHOSPHAMIDE [Suspect]
     Active Substance: CYCLOPHOSPHAMIDE
     Indication: Choroid plexus carcinoma
     Dosage: DOSE NOT REPORTED
     Route: 065
  6. CYCLOPHOSPHAMIDE [Suspect]
     Active Substance: CYCLOPHOSPHAMIDE
     Indication: Li-Fraumeni syndrome
  7. VINCRISTINE [Suspect]
     Active Substance: VINCRISTINE
     Indication: Choroid plexus carcinoma
     Dosage: DOSE NOT REPORTED
     Route: 065
  8. VINCRISTINE [Suspect]
     Active Substance: VINCRISTINE
     Indication: Li-Fraumeni syndrome
  9. TOPOTECAN [Suspect]
     Active Substance: TOPOTECAN HYDROCHLORIDE
     Indication: Choroid plexus carcinoma
     Dosage: DOSE NOT REPORTED
     Route: 065

REACTIONS (2)
  - Malignant neoplasm progression [Unknown]
  - Lymphopenia [Unknown]

NARRATIVE: CASE EVENT DATE: 20180101
